FAERS Safety Report 16365410 (Version 1)
Quarter: 2019Q2

REPORT INFORMATION
  Report Type: Spontaneous
  Country: US (occurrence: US)
  Receive Date: 20190420
  Receipt Date: 20190420
  Transmission Date: 20190711
  Serious: Yes (Hospitalization)
  Sender: FDA-Public Use
  Company Number: None

PATIENT
  Age: 36 Year
  Sex: Male
  Weight: 66.5 kg

DRUGS (4)
  1. CISPLATIN. [Suspect]
     Active Substance: CISPLATIN
     Dates: end: 20190322
  2. G-CSF (FILGRASTIM, AMGEN) [Suspect]
     Active Substance: FILGRASTIM
     Dates: end: 20190322
  3. TAXOL [Suspect]
     Active Substance: PACLITAXEL
     Dates: end: 20190318
  4. IFOSFAMIDE. [Suspect]
     Active Substance: IFOSFAMIDE
     Dates: end: 20190322

REACTIONS (4)
  - Pyrexia [None]
  - Diarrhoea [None]
  - Leukopenia [None]
  - C-reactive protein increased [None]

NARRATIVE: CASE EVENT DATE: 20190327
